FAERS Safety Report 7829298-4 (Version None)
Quarter: 2011Q4

REPORT INFORMATION
  Report Type: 
  Country: None (occurrence: None)
  Receive Date: 20111020
  Receipt Date: 20111013
  Transmission Date: 20120403
  Serious: Yes (Hospitalization)
  Sender: FDA-Public Use
  Company Number: US-CELGENEUS-163-21880-11101718

PATIENT
  Sex: Male

DRUGS (1)
  1. REVLIMID [Suspect]
     Indication: LYMPHATIC DISORDER
     Dosage: 5 MILLIGRAM
     Route: 048
     Dates: start: 20110810

REACTIONS (4)
  - MUSCULOSKELETAL STIFFNESS [None]
  - MYALGIA [None]
  - HYPERTENSION [None]
  - CARDIAC DISORDER [None]
